FAERS Safety Report 14455877 (Version 16)
Quarter: 2023Q2

REPORT INFORMATION
  Report Type: Other
  Country: PT (occurrence: PT)
  Receive Date: 20180130
  Receipt Date: 20230501
  Transmission Date: 20230721
  Serious: Yes (Life-Threatening, Hospitalization, Other)
  Sender: FDA-Public Use
  Company Number: PT-009507513-1709PRT010078

PATIENT
  Age: 23 Year
  Sex: Female
  Weight: 102 kg

DRUGS (45)
  1. OMALIZUMAB [Suspect]
     Active Substance: OMALIZUMAB
     Indication: Asthma
     Route: 065
  2. OMALIZUMAB [Suspect]
     Active Substance: OMALIZUMAB
     Indication: Angioedema
     Route: 065
  3. OMALIZUMAB [Suspect]
     Active Substance: OMALIZUMAB
     Indication: Urticaria chronic
     Route: 065
  4. LORATADINE [Suspect]
     Active Substance: LORATADINE
     Indication: Asthma
     Route: 065
  5. LORATADINE [Suspect]
     Active Substance: LORATADINE
     Indication: Urticaria chronic
     Route: 065
  6. MONTELUKAST SODIUM [Suspect]
     Active Substance: MONTELUKAST SODIUM
     Indication: Asthma
     Route: 048
  7. MONTELUKAST SODIUM [Suspect]
     Active Substance: MONTELUKAST SODIUM
     Indication: Urticaria chronic
     Route: 065
  8. IBUPROFEN [Suspect]
     Active Substance: IBUPROFEN
     Indication: Urticaria chronic
     Route: 065
  9. IBUPROFEN [Suspect]
     Active Substance: IBUPROFEN
     Indication: Asthma
     Route: 065
  10. DESLORATADINE [Suspect]
     Active Substance: DESLORATADINE
     Indication: Asthma
     Route: 048
  11. DESLORATADINE [Suspect]
     Active Substance: DESLORATADINE
     Indication: Urticaria chronic
     Route: 065
  12. DESLORATADINE [Suspect]
     Active Substance: DESLORATADINE
     Indication: Drug provocation test
  13. CETIRIZINE HYDROCHLORIDE [Suspect]
     Active Substance: CETIRIZINE HYDROCHLORIDE
     Indication: Urticaria chronic
     Route: 065
  14. CETIRIZINE HYDROCHLORIDE [Suspect]
     Active Substance: CETIRIZINE HYDROCHLORIDE
     Indication: Asthma
  15. ACETAMINOPHEN [Suspect]
     Active Substance: ACETAMINOPHEN
     Indication: Asthma
     Route: 065
  16. ACETAMINOPHEN [Suspect]
     Active Substance: ACETAMINOPHEN
     Indication: Urticaria chronic
     Route: 065
  17. FLURBIPROFEN [Suspect]
     Active Substance: FLURBIPROFEN
     Indication: Asthma
     Route: 065
  18. FLURBIPROFEN [Suspect]
     Active Substance: FLURBIPROFEN
     Indication: Urticaria chronic
     Route: 065
  19. FLURBIPROFEN [Suspect]
     Active Substance: FLURBIPROFEN
     Indication: Drug provocation test
     Route: 065
  20. METHYLPREDNISOLONE [Suspect]
     Active Substance: METHYLPREDNISOLONE
     Indication: Urticaria chronic
     Route: 062
  21. METHYLPREDNISOLONE [Suspect]
     Active Substance: METHYLPREDNISOLONE
     Indication: Asthma
     Route: 065
  22. METHYLPREDNISOLONE [Suspect]
     Active Substance: METHYLPREDNISOLONE
     Route: 062
  23. DEFLAZACORT [Suspect]
     Active Substance: DEFLAZACORT
     Indication: Asthma
     Route: 062
  24. DEFLAZACORT [Suspect]
     Active Substance: DEFLAZACORT
     Indication: Urticaria chronic
     Route: 048
  25. DEXAMETHASONE SODIUM PHOSPHATE [Suspect]
     Active Substance: DEXAMETHASONE SODIUM PHOSPHATE
     Indication: Urticaria chronic
     Route: 065
  26. DEXAMETHASONE SODIUM PHOSPHATE [Suspect]
     Active Substance: DEXAMETHASONE SODIUM PHOSPHATE
     Indication: Asthma
     Route: 065
  27. EBASTINE [Suspect]
     Active Substance: EBASTINE
     Indication: Asthma
     Route: 065
  28. EBASTINE [Suspect]
     Active Substance: EBASTINE
     Indication: Urticaria chronic
     Route: 065
  29. LORATADINE [Suspect]
     Active Substance: LORATADINE
     Indication: Asthma
     Route: 048
  30. LORATADINE [Suspect]
     Active Substance: LORATADINE
     Route: 048
  31. LORATADINE [Suspect]
     Active Substance: LORATADINE
     Route: 048
  32. LORATADINE [Suspect]
     Active Substance: LORATADINE
     Route: 048
  33. LORATADINE [Suspect]
     Active Substance: LORATADINE
     Route: 065
  34. LORATADINE [Suspect]
     Active Substance: LORATADINE
     Route: 065
  35. LORATADINE [Suspect]
     Active Substance: LORATADINE
     Route: 065
  36. LORATADINE [Suspect]
     Active Substance: LORATADINE
     Route: 065
  37. LORATADINE [Suspect]
     Active Substance: LORATADINE
     Route: 065
  38. CLEMASTINE [Suspect]
     Active Substance: CLEMASTINE
     Indication: Asthma
     Route: 065
  39. CLEMASTINE [Suspect]
     Active Substance: CLEMASTINE
     Indication: Urticaria chronic
  40. HYDROXYZINE [Suspect]
     Active Substance: HYDROXYZINE HYDROCHLORIDE
     Indication: Urticaria chronic
     Route: 065
  41. HYDROCORTISONE [Suspect]
     Active Substance: HYDROCORTISONE
     Indication: Urticaria chronic
     Route: 062
  42. HYDROCORTISONE [Suspect]
     Active Substance: HYDROCORTISONE
     Indication: Asthma
     Route: 048
  43. ZYRTEC [Suspect]
     Active Substance: CETIRIZINE HYDROCHLORIDE
     Indication: Asthma
     Route: 065
  44. ZYRTEC [Suspect]
     Active Substance: CETIRIZINE HYDROCHLORIDE
     Indication: Urticaria chronic
     Route: 065
  45. DIMETHINDENE MALEATE [Suspect]
     Active Substance: DIMETHINDENE MALEATE
     Indication: Product used for unknown indication
     Route: 065

REACTIONS (8)
  - Drug hypersensitivity [Unknown]
  - Urticaria [Recovering/Resolving]
  - Angioedema [Recovered/Resolved]
  - Allergy test positive [Recovering/Resolving]
  - Syncope [Unknown]
  - Drug reaction with eosinophilia and systemic symptoms [Recovered/Resolved]
  - Maternal exposure during pregnancy [Unknown]
  - Off label use [Unknown]
